FAERS Safety Report 7547316-8 (Version None)
Quarter: 2011Q2

REPORT INFORMATION
  Report Type: 
  Country: None (occurrence: None)
  Receive Date: 20110614
  Receipt Date: 20110606
  Transmission Date: 20111010
  Serious: Yes (Other)
  Sender: FDA-Public Use
  Company Number: US-AMGEN-USASP2011024697

PATIENT
  Age: 70 Year
  Sex: Male
  Weight: 112.47 kg

DRUGS (1)
  1. PROCRIT [Suspect]
     Indication: NEPHROGENIC ANAEMIA

REACTIONS (1)
  - APLASIA PURE RED CELL [None]
